FAERS Safety Report 12598000 (Version 1)
Quarter: 2016Q3

REPORT INFORMATION
  Report Type: Spontaneous
  Country: US (occurrence: None)
  Receive Date: 20160726
  Receipt Date: 20160726
  Transmission Date: 20161109
  Serious: Yes (Life-Threatening, Hospitalization, Disabling, Other)
  Sender: FDA-Public Use
  Company Number: None

PATIENT
  Age: 35 Year
  Sex: Female
  Weight: 52.16 kg

DRUGS (2)
  1. CVS NICOTINE [Suspect]
     Active Substance: NICOTINE
     Indication: SMOKING CESSATION THERAPY
     Dosage: ONE PATCH DAILY CONTINUOUS ON THE SKIN
     Dates: start: 20160704, end: 20160707
  2. PROAIR-HFA [Concomitant]

REACTIONS (7)
  - Tremor [None]
  - Disorientation [None]
  - Amnesia [None]
  - Accidental overdose [None]
  - Cardiac arrest [None]
  - Nausea [None]
  - Irritability [None]

NARRATIVE: CASE EVENT DATE: 20160707
